FAERS Safety Report 21711898 (Version 1)
Quarter: 2022Q4

REPORT INFORMATION
  Report Type: Spontaneous
  Country: JP (occurrence: JP)
  Receive Date: 20221212
  Receipt Date: 20221212
  Transmission Date: 20230113
  Serious: Yes (Hospitalization)
  Sender: FDA-Public Use
  Company Number: JP-ZAMBON-202203382COR

PATIENT
  Age: 7 Decade
  Sex: Female

DRUGS (5)
  1. SAFINAMIDE [Suspect]
     Active Substance: SAFINAMIDE
     Indication: Parkinson^s disease
     Route: 048
  2. SAFINAMIDE [Suspect]
     Active Substance: SAFINAMIDE
     Route: 048
     Dates: start: 20220201
  3. SAFINAMIDE [Suspect]
     Active Substance: SAFINAMIDE
     Route: 048
  4. LEVODOPA [Concomitant]
     Active Substance: LEVODOPA
     Dosage: APPROXIMATELY 400MG TO 500MG
  5. DOPAMINE [Concomitant]
     Active Substance: DOPAMINE HYDROCHLORIDE
     Dosage: NOT PROVIDED

REACTIONS (2)
  - Parkinson^s disease [Unknown]
  - Impulse-control disorder [Recovering/Resolving]

NARRATIVE: CASE EVENT DATE: 20221101
